FAERS Safety Report 16130673 (Version 2)
Quarter: 2019Q2

REPORT INFORMATION
  Report Type: Spontaneous
  Country: US (occurrence: US)
  Receive Date: 20190328
  Receipt Date: 20190530
  Transmission Date: 20190711
  Serious: Yes (Other)
  Sender: FDA-Public Use
  Company Number: US-MALLINCKRODT-T201901990

PATIENT
  Sex: Female

DRUGS (2)
  1. H.P. ACTHAR [Suspect]
     Active Substance: CORTICOTROPIN
     Indication: SPINAL OSTEOARTHRITIS
  2. H.P. ACTHAR [Suspect]
     Active Substance: CORTICOTROPIN
     Indication: IMMUNODEFICIENCY
     Dosage: 80 UNITS (1 ML), TWO TIMES A WEEK AS DIRECTED
     Route: 058
     Dates: start: 201809

REACTIONS (8)
  - Weight increased [Unknown]
  - Drug ineffective [Unknown]
  - Spinal osteoarthritis [Unknown]
  - Condition aggravated [Unknown]
  - Appetite disorder [Unknown]
  - Immunodeficiency [Unknown]
  - Rash [Unknown]
  - Therapy cessation [Unknown]
